FAERS Safety Report 9928589 (Version 1)
Quarter: 2014Q1

REPORT INFORMATION
  Report Type: Spontaneous
  Country: CH (occurrence: CH)
  Receive Date: 20140227
  Receipt Date: 20140227
  Transmission Date: 20141002
  Serious: Yes (Hospitalization)
  Sender: FDA-Public Use
  Company Number: PHHY2014CH021405

PATIENT
  Age: 66 Year
  Sex: Female
  Weight: 59 kg

DRUGS (10)
  1. ALLOPUR [Suspect]
     Indication: HYPERURICAEMIA
     Dosage: 300 MG, TIW
     Route: 048
     Dates: start: 2013, end: 20140107
  2. IMUREK [Interacting]
     Indication: SYSTEMIC LUPUS ERYTHEMATOSUS
     Dosage: 100 MG, QD
     Route: 048
     Dates: start: 1994, end: 20140107
  3. PLAQUENIL [Suspect]
     Indication: SYSTEMIC LUPUS ERYTHEMATOSUS
     Dosage: 400 MG, QD
     Route: 048
     Dates: start: 1994, end: 20140107
  4. ASPIRIN CARDIO [Concomitant]
     Dosage: 100 MG, QD
     Route: 048
     Dates: end: 20140121
  5. ATORVASTATIN PFIZER [Concomitant]
     Dosage: 40 MG, QD
     Route: 048
  6. ELTROXIN LF [Concomitant]
     Dosage: 0.1 MG, QD
     Route: 048
  7. CALCIMAGON D3 [Concomitant]
     Dosage: 1 DF, BID
     Route: 048
  8. LOSARTAN + HIDROCLOROTIAZIDA [Concomitant]
     Dosage: 0.5 DF, QD
     Route: 048
  9. SPIRICORT [Concomitant]
     Dosage: 7.5 MG, QD
     Route: 048
     Dates: end: 201401
  10. TOREM [Concomitant]
     Dosage: 10 MG, QD
     Route: 048

REACTIONS (2)
  - Pancytopenia [Recovering/Resolving]
  - Cardiomyopathy [Recovering/Resolving]
